FAERS Safety Report 4685986-2 (Version None)
Quarter: 2005Q2

REPORT INFORMATION
  Report Type: 
  Country: None (occurrence: None)
  Receive Date: 20050609
  Receipt Date: 20050520
  Transmission Date: 20051028
  Serious: Yes (Death, Hospitalization)
  Sender: FDA-Public Use
  Company Number: RU-NOVOPROD-244312

PATIENT
  Age: 9 Year
  Sex: Female
  Weight: 35 kg

DRUGS (6)
  1. NOVOSEVEN [Suspect]
     Indication: HAEMORRHAGE INTRACRANIAL
     Dosage: 2.4 MG, WITH 2 HOURS INTERVAL
     Dates: start: 20040107
  2. NOVOSEVEN [Suspect]
     Dosage: 2.4 MG, WITH 2 HOURS INTERVAL
     Dates: start: 20040107
  3. NOVOSEVEN [Suspect]
     Dosage: 2.4 MG, WITH 2 HOURS INTERVAL
     Dates: start: 20040107
  4. NOVOSEVEN [Suspect]
     Dosage: 2.4 MG, WITH 2 HOURS INTERVAL
     Dates: start: 20040107
  5. CEFEPIME [Concomitant]
  6. PREDNISOLONE [Concomitant]

REACTIONS (2)
  - CONCOMITANT DISEASE PROGRESSION [None]
  - DEATH [None]
